FAERS Safety Report 10268416 (Version 1)
Quarter: 2014Q2

REPORT INFORMATION
  Report Type: Spontaneous
  Country: SE (occurrence: SE)
  Receive Date: 20140630
  Receipt Date: 20140630
  Transmission Date: 20141212
  Serious: Yes (Life-Threatening)
  Sender: FDA-Public Use
  Company Number: SE-BRISTOL-MYERS SQUIBB COMPANY-21064878

PATIENT
  Age: 68 Year
  Sex: Male

DRUGS (2)
  1. ORENCIA [Suspect]
     Dosage: DRUG INTERRUPTED ON 24-APR-2014
     Dates: start: 20110614
  2. METHOTREXATE [Suspect]
     Dosage: DRUG INTERRUPTED ON 24-APR-2014
     Dates: start: 20110801

REACTIONS (1)
  - B-cell lymphoma [Not Recovered/Not Resolved]
